FAERS Safety Report 9492313 (Version 1)
Quarter: 2013Q3

REPORT INFORMATION
  Report Type: Spontaneous
  Country: GB (occurrence: GB)
  Receive Date: 20130830
  Receipt Date: 20130830
  Transmission Date: 20140515
  Serious: Yes (Life-Threatening, Hospitalization)
  Sender: FDA-Public Use
  Company Number: PHHY2013GB092159

PATIENT
  Age: 58 Year
  Sex: Male

DRUGS (4)
  1. CO-TRIMOXAZOLE [Suspect]
  2. METHYLPREDNISOLONE [Concomitant]
  3. AMOXICILLIN [Concomitant]
  4. CLARITHROMYCIN [Concomitant]

REACTIONS (7)
  - Hyperkalaemia [Recovered/Resolved]
  - Hypoxia [Recovered/Resolved]
  - Respiratory acidosis [Recovered/Resolved]
  - Metabolic acidosis [Recovered/Resolved]
  - Renal failure acute [Recovered/Resolved]
  - Renal impairment [Recovered/Resolved]
  - Polyuria [Recovered/Resolved]
